FAERS Safety Report 6742806-X (Version None)
Quarter: 2010Q2

REPORT INFORMATION
  Report Type: 
  Country: None (occurrence: None)
  Receive Date: 20100525
  Receipt Date: 20100510
  Transmission Date: 20101027
  Serious: Yes (Hospitalization)
  Sender: FDA-Public Use
  Company Number: IDR-00371

PATIENT
  Age: 71 Year
  Sex: Female
  Weight: 63.05 kg

DRUGS (9)
  1. INDERAL LA [Suspect]
     Indication: MIGRAINE
     Dosage: 160 MG TWICE DAILY ORAL
     Route: 048
  2. PROPRANOLOL EXTENDED RELEASE, 160 MG [Suspect]
     Indication: MIGRAINE
     Dosage: 160 MG, TWICE DAILY, ORAL
     Route: 048
     Dates: start: 20100401, end: 20100401
  3. CITRACAL [Concomitant]
  4. PREVACID [Concomitant]
  5. PROZAC [Concomitant]
  6. FLORICET [Concomitant]
  7. IMITREX [Concomitant]
  8. PAMELOR [Concomitant]
  9. LUNESTA [Concomitant]

REACTIONS (3)
  - FALL [None]
  - HEART RATE INCREASED [None]
  - PRODUCT SUBSTITUTION ISSUE [None]
